FAERS Safety Report 13899756 (Version 1)
Quarter: 2017Q3

REPORT INFORMATION
  Report Type: Spontaneous
  Country: US (occurrence: None)
  Receive Date: 20170824
  Receipt Date: 20170824
  Transmission Date: 20171127
  Serious: Yes (Hospitalization)
  Sender: FDA-Public Use
  Company Number: None

PATIENT
  Age: 69 Year
  Sex: Male
  Weight: 86.82 kg

DRUGS (2)
  1. RADIUM RA-223 DICHLORIDE [Suspect]
     Active Substance: RADIUM RA-223 DICHLORIDE
     Indication: PROSTATE CANCER
     Route: 042
     Dates: start: 20160726, end: 20161215
  2. ENZALUTAMIDE [Suspect]
     Active Substance: ENZALUTAMIDE
     Indication: PROSTATE CANCER
     Route: 048
     Dates: start: 20160718

REACTIONS (6)
  - Leg amputation [None]
  - Hip fracture [None]
  - Localised infection [None]
  - Bacterial infection [None]
  - Fall [None]
  - Foot amputation [None]

NARRATIVE: CASE EVENT DATE: 20170505
